FAERS Safety Report 10549970 (Version 2)
Quarter: 2015Q2

REPORT INFORMATION
  Report Type: Spontaneous
  Country: US (occurrence: None)
  Receive Date: 20141020
  Receipt Date: 20150420
  Transmission Date: 20150821
  Serious: No
  Sender: FDA-Public Use
  Company Number: AEGR000754

PATIENT
  Age: 52 Year
  Sex: Male
  Weight: 86.2 kg

DRUGS (7)
  1. OMEGA 3 6 9 (OMEGA 9 FATTY ACIDS, OMEGA-3 FATTY ACIDS, OMEGA-6 FATTY ACIDS) [Concomitant]
  2. ASA [Concomitant]
     Active Substance: ASPIRIN
  3. ZETIA [Concomitant]
     Active Substance: EZETIMIBE
  4. JUXTAPID [Suspect]
     Active Substance: LOMITAPIDE MESYLATE
     Indication: TYPE IIA HYPERLIPIDAEMIA
     Route: 048
     Dates: start: 20140913
  5. CRESTOR [Concomitant]
     Active Substance: ROSUVASTATIN CALCIUM
  6. COREG [Concomitant]
     Active Substance: CARVEDILOL
  7. VITAMIN E (TOCOPHERYL ACETATE) [Concomitant]

REACTIONS (2)
  - Abnormal dreams [None]
  - Weight decreased [None]

NARRATIVE: CASE EVENT DATE: 201409
